FAERS Safety Report 4608077-5 (Version None)
Quarter: 2005Q2

REPORT INFORMATION
  Report Type: 
  Country: None (occurrence: None)
  Receive Date: 20050303
  Receipt Date: 20041028
  Transmission Date: 20051028
  Serious: No
  Sender: FDA-Public Use
  Company Number: 210021

PATIENT
  Age: 78 Year
  Sex: Male

DRUGS (1)
  1. XOLAIR [Suspect]
     Dosage: 300 MG, Q2W, SUBCUTANEOUS
     Route: 058
     Dates: start: 20040701

REACTIONS (2)
  - ARTHRALGIA [None]
  - MYALGIA [None]
